FAERS Safety Report 8389456-X (Version None)
Quarter: 2012Q2

REPORT INFORMATION
  Report Type: 
  Country: None (occurrence: None)
  Receive Date: 20120528
  Receipt Date: 20120515
  Transmission Date: 20120825
  Serious: Yes (Hospitalization, Other)
  Sender: FDA-Public Use
  Company Number: US-ELI_LILLY_AND_COMPANY-US201007000403

PATIENT
  Sex: Female

DRUGS (18)
  1. LEVOTHYROXINE SODIUM [Concomitant]
  2. FORTEO [Suspect]
     Indication: OSTEOPOROSIS
     Dosage: 20 UG, DAILY (1/D)
     Dates: start: 20100501
  3. FORTEO [Suspect]
     Dosage: 20 UG, DAILY (1/D)
  4. FORTEO [Suspect]
     Dosage: 20 UG, DAILY (1/D)
  5. XANAX [Concomitant]
  6. FORTEO [Suspect]
     Dosage: 20 UG, DAILY (1/D)
  7. FORTEO [Suspect]
     Dosage: 20 UG, DAILY (1/D)
  8. HYDROCODONE BITARTRATE [Concomitant]
  9. NORVASC [Concomitant]
  10. FISH OIL [Concomitant]
  11. LIPITOR [Concomitant]
  12. ASPIRIN [Concomitant]
  13. NEXIUM [Concomitant]
  14. CALCIUM CARBONATE [Concomitant]
  15. LOSARTAN POTASSIUM [Concomitant]
  16. MULTI-VITAMINS [Concomitant]
  17. GLYCOL [Concomitant]
  18. ATENOLOL [Concomitant]

REACTIONS (30)
  - MUSCULOSKELETAL DISCOMFORT [None]
  - DEVICE MALFUNCTION [None]
  - ARTHRALGIA [None]
  - MUSCULOSKELETAL PAIN [None]
  - PAIN IN EXTREMITY [None]
  - GENERAL SYMPTOM [None]
  - COUGH [None]
  - FATIGUE [None]
  - EATING DISORDER [None]
  - ARTHROPATHY [None]
  - CHEST PAIN [None]
  - MALAISE [None]
  - SNEEZING [None]
  - BURNING SENSATION [None]
  - ORAL DISCOMFORT [None]
  - DIZZINESS [None]
  - HEADACHE [None]
  - FEELING HOT [None]
  - DRUG DOSE OMISSION [None]
  - PALPITATIONS [None]
  - SLEEP DISORDER DUE TO A GENERAL MEDICAL CONDITION [None]
  - ARTHRITIS [None]
  - VOMITING [None]
  - ASTHENIA [None]
  - NAUSEA [None]
  - MOBILITY DECREASED [None]
  - BACK PAIN [None]
  - FEELING ABNORMAL [None]
  - PAIN [None]
  - INTENTIONAL DRUG MISUSE [None]
